FAERS Safety Report 7372183-5 (Version None)
Quarter: 2011Q1

REPORT INFORMATION
  Report Type: 
  Country: None (occurrence: None)
  Receive Date: 20110311
  Receipt Date: 20110307
  Transmission Date: 20110831
  Serious: Yes (Hospitalization)
  Sender: FDA-Public Use
  Company Number: A0917050A

PATIENT
  Age: 89 Year
  Sex: Male

DRUGS (6)
  1. WARFARIN SODIUM [Suspect]
     Indication: ATRIAL FIBRILLATION
     Dosage: 2.5 MG /PER DAY / ORAL
     Route: 048
  2. METOPROLOL [Concomitant]
  3. OMEPRAZOLE [Concomitant]
  4. NITROGLYCERIN [Concomitant]
  5. ASPIRIN [Suspect]
     Dosage: 81 MG/ORAL
     Route: 048
  6. MULTI-VITAMIN [Concomitant]

REACTIONS (1)
  - INTESTINAL HAEMORRHAGE [None]
